FAERS Safety Report 5202605-7 (Version None)
Quarter: 2006Q4

REPORT INFORMATION
  Report Type: 
  Country: None (occurrence: None)
  Receive Date: 20061018
  Receipt Date: 20050620
  Transmission Date: 20070319
  Serious: Yes (Disabling)
  Sender: FDA-Public Use
  Company Number: PHEH2005US05891

PATIENT
  Age: 62 Year
  Sex: Female

DRUGS (4)
  1. ZOMETA [Suspect]
     Indication: OSTEOPOROSIS
     Dosage: 4 MG IN JAN, FEB AND MAR 2005, INTRAVENOUS
     Route: 042
     Dates: start: 20050125, end: 20050301
  2. MEGASTROL (MEGESTROL) [Concomitant]
  3. LIPITOR [Concomitant]
  4. TAXOL [Concomitant]

REACTIONS (3)
  - ARTHRALGIA [None]
  - BONE PAIN [None]
  - MYALGIA [None]
